FAERS Safety Report 23300311 (Version 1)
Quarter: 2023Q4

REPORT INFORMATION
  Report Type: Spontaneous
  Country: CN (occurrence: CN)
  Receive Date: 20231215
  Receipt Date: 20231215
  Transmission Date: 20240109
  Serious: Yes (Life-Threatening, Hospitalization, Other)
  Sender: FDA-Public Use
  Company Number: CN-GLAXOSMITHKLINE-CN2023GSK174827

PATIENT

DRUGS (2)
  1. ZEJULA [Suspect]
     Active Substance: NIRAPARIB
     Indication: Ovarian cancer stage III
     Dosage: 200 MG, QD
     Route: 048
     Dates: start: 20231104, end: 20231116
  2. ZEJULA [Suspect]
     Active Substance: NIRAPARIB
     Dosage: 400 MG, QD
     Route: 048
     Dates: start: 20231117, end: 20231203

REACTIONS (2)
  - Myelosuppression [Recovering/Resolving]
  - Off label use [Unknown]

NARRATIVE: CASE EVENT DATE: 20231203
